FAERS Safety Report 23222160 (Version 2)
Quarter: 2023Q4

REPORT INFORMATION
  Report Type: Spontaneous
  Country: US (occurrence: US)
  Receive Date: 20231123
  Receipt Date: 20231205
  Transmission Date: 20240109
  Serious: No
  Sender: FDA-Public Use
  Company Number: US-PFIZER INC-PV202300187564

PATIENT
  Age: 14 Year
  Sex: Male

DRUGS (1)
  1. GENOTROPIN [Suspect]
     Active Substance: SOMATROPIN
     Dosage: 1 MG, DAILY
     Dates: start: 202310

REACTIONS (6)
  - Drug dose omission by device [Recovered/Resolved]
  - Device breakage [Recovered/Resolved]
  - Device leakage [Recovered/Resolved]
  - Device difficult to use [Unknown]
  - Poor quality product administered [Unknown]
  - Product storage error [Unknown]
